FAERS Safety Report 23585747 (Version 2)
Quarter: 2024Q1

REPORT INFORMATION
  Report Type: Spontaneous
  Country: FR (occurrence: FR)
  Receive Date: 20240301
  Receipt Date: 20240326
  Transmission Date: 20240410
  Serious: Yes (Other)
  Sender: FDA-Public Use
  Company Number: FR-TEVA-VS-3164663

PATIENT
  Age: 51 Year
  Sex: Male

DRUGS (1)
  1. VERAPAMIL [Suspect]
     Active Substance: VERAPAMIL HYDROCHLORIDE
     Indication: Prophylaxis
     Route: 065

REACTIONS (4)
  - Acute respiratory distress syndrome [Unknown]
  - Bundle branch block left [Unknown]
  - Overdose [Unknown]
  - Atrioventricular block first degree [Unknown]
